FAERS Safety Report 18913323 (Version 13)
Quarter: 2023Q1

REPORT INFORMATION
  Report Type: Spontaneous
  Country: CA (occurrence: CA)
  Receive Date: 20210219
  Receipt Date: 20230329
  Transmission Date: 20230418
  Serious: Yes (Other)
  Sender: FDA-Public Use
  Company Number: CA-CELLTRION INC.-2021CA000634

PATIENT

DRUGS (20)
  1. INFLECTRA [Suspect]
     Active Substance: INFLIXIMAB-DYYB
     Indication: Crohn^s disease
     Dosage: 10 MG/KG (520MG), EVERY 4 WEEKS
     Route: 042
     Dates: start: 20200428
  2. INFLECTRA [Suspect]
     Active Substance: INFLIXIMAB-DYYB
     Dosage: 10 MG/KG (550MG), EVERY 4 WEEKS
     Route: 042
     Dates: start: 20200428
  3. INFLECTRA [Suspect]
     Active Substance: INFLIXIMAB-DYYB
     Dosage: 10 MG/KG,  EVERY 4 WEEKS
     Route: 042
     Dates: start: 20200428
  4. INFLECTRA [Suspect]
     Active Substance: INFLIXIMAB-DYYB
     Dosage: 10 MG/KG, EVERY 24 DAYS
     Route: 042
     Dates: start: 20201229
  5. INFLECTRA [Suspect]
     Active Substance: INFLIXIMAB-DYYB
     Dosage: 10 MG/KG, EVERY 24 DAYS
     Route: 042
     Dates: start: 20210610
  6. INFLECTRA [Suspect]
     Active Substance: INFLIXIMAB-DYYB
     Dosage: 10 MG/KG, EVERY 24 DAYS
     Route: 042
     Dates: start: 20210610
  7. INFLECTRA [Suspect]
     Active Substance: INFLIXIMAB-DYYB
     Dosage: 10 MG/KG, EVERY 24 DAYS
     Route: 042
     Dates: start: 20210616
  8. INFLECTRA [Suspect]
     Active Substance: INFLIXIMAB-DYYB
     Dosage: 10 MG/KG, EVERY 24 DAYS
     Route: 042
     Dates: start: 20210616
  9. INFLECTRA [Suspect]
     Active Substance: INFLIXIMAB-DYYB
     Dosage: 10 MG/KG, EVERY 24 DAYS
     Route: 042
     Dates: start: 20210811
  10. INFLECTRA [Suspect]
     Active Substance: INFLIXIMAB-DYYB
     Dosage: 10 MG/KG (550 MG)
     Route: 042
     Dates: start: 20220831
  11. INFLECTRA [Suspect]
     Active Substance: INFLIXIMAB-DYYB
     Dosage: 10 MG/KG (550 MG)
     Route: 042
     Dates: start: 20220929
  12. INFLECTRA [Suspect]
     Active Substance: INFLIXIMAB-DYYB
     Dosage: 10 MG/KG,  EVERY 4 WEEKS
     Route: 042
     Dates: start: 20221026
  13. INFLECTRA [Suspect]
     Active Substance: INFLIXIMAB-DYYB
     Dosage: 10 MG/KG,  EVERY 4 WEEKS
     Route: 042
     Dates: start: 20221122
  14. INFLECTRA [Suspect]
     Active Substance: INFLIXIMAB-DYYB
     Dosage: 10 MG/KG (565 MG) EVERY 4 WEEKS
     Route: 042
     Dates: start: 20221220
  15. INFLECTRA [Suspect]
     Active Substance: INFLIXIMAB-DYYB
     Dosage: 10 MG/KG,  EVERY 4 WEEKS
     Route: 042
     Dates: start: 20230118
  16. INFLECTRA [Suspect]
     Active Substance: INFLIXIMAB-DYYB
     Dosage: 10 MG/KG,  EVERY 4 WEEKS
     Route: 042
     Dates: start: 20230315
  17. PREDNISONE [Concomitant]
     Active Substance: PREDNISONE
     Dosage: 25 MG, UNK
  18. PREDNISONE [Concomitant]
     Active Substance: PREDNISONE
     Dosage: 10 MG, DAILY
  19. PREDNISONE [Concomitant]
     Active Substance: PREDNISONE
     Dosage: 15 MG, DAILY
  20. UPADACITINIB [Concomitant]
     Active Substance: UPADACITINIB
     Dosage: UNK

REACTIONS (12)
  - Postoperative wound infection [Unknown]
  - Enterocutaneous fistula [Unknown]
  - Haemorrhage [Unknown]
  - Intestinal resection [Unknown]
  - Haemoglobin decreased [Unknown]
  - Post procedural discharge [Unknown]
  - Fistula discharge [Unknown]
  - Infection [Unknown]
  - Serum ferritin decreased [Unknown]
  - Arthralgia [Unknown]
  - Iron deficiency anaemia [Unknown]
  - Off label use [Unknown]

NARRATIVE: CASE EVENT DATE: 20200428
